FAERS Safety Report 5211171-1 (Version None)
Quarter: 2006Q4

REPORT INFORMATION
  Report Type: 
  Country: None (occurrence: None)
  Receive Date: 20061114
  Receipt Date: 20060822
  Transmission Date: 20070319
  Serious: No
  Sender: FDA-Public Use
  Company Number: S06-USA-03454-01

PATIENT
  Sex: Female

DRUGS (1)
  1. NAMENDA [Suspect]
     Dosage: 5 MG QD PO
     Route: 048

REACTIONS (2)
  - AGITATION [None]
  - HALLUCINATION [None]
